FAERS Safety Report 7125470-X (Version None)
Quarter: 2010Q4

REPORT INFORMATION
  Report Type: 
  Country: None (occurrence: None)
  Receive Date: 20101129
  Receipt Date: 20101118
  Transmission Date: 20110411
  Serious: Yes (Other)
  Sender: FDA-Public Use
  Company Number: FR-B.I. PHARMACEUTICALS,INC./RIDGEFIELD-2010-FF-00937FF

PATIENT
  Age: 82 Year
  Sex: Female

DRUGS (9)
  1. PRADAXA [Suspect]
     Indication: KNEE ARTHROPLASTY
     Dosage: 150 MG
     Route: 048
     Dates: start: 20101019, end: 20101030
  2. PROCORALAN [Concomitant]
  3. TAHOR [Concomitant]
  4. TADENAN [Concomitant]
  5. PERINDOPRIL ERBUMINE [Concomitant]
  6. LASILIX [Concomitant]
  7. TRIVASTAL [Concomitant]
  8. SPIRIVA [Concomitant]
  9. DAFALGAN [Concomitant]

REACTIONS (1)
  - PHLEBITIS DEEP [None]
